FAERS Safety Report 24016072 (Version 10)
Quarter: 2025Q1

REPORT INFORMATION
  Report Type: Report from Study
  Country: US (occurrence: US)
  Receive Date: 20240626
  Receipt Date: 20250108
  Transmission Date: 20250408
  Serious: Yes (Other)
  Sender: TAKEDA
  Company Number: US-TAKEDA-2024TUS060000

PATIENT
  Age: 55 Year
  Sex: Female
  Weight: 72 kg

DRUGS (29)
  1. HUMAN IMMUNOGLOBULIN G [Suspect]
     Active Substance: HUMAN IMMUNOGLOBULIN G
     Indication: Dermatomyositis
  2. HUMAN IMMUNOGLOBULIN G [Suspect]
     Active Substance: HUMAN IMMUNOGLOBULIN G
     Dosage: 50 GRAM, Q4WEEKS
  3. ACETAMINOPHEN [Concomitant]
     Active Substance: ACETAMINOPHEN
  4. EPINEPHRINE [Concomitant]
     Active Substance: EPINEPHRINE
  5. PENTOXIFYLLINE [Concomitant]
     Active Substance: PENTOXIFYLLINE
  6. VITAMIN C [Concomitant]
     Active Substance: ASCORBIC ACID
  7. DEXAMETHASONE [Concomitant]
     Active Substance: DEXAMETHASONE
  8. PREGABALIN [Concomitant]
     Active Substance: PREGABALIN
  9. SODIUM CHLORIDE [Concomitant]
     Active Substance: SODIUM CHLORIDE
  10. AMLODIPINE BESYLATE [Concomitant]
     Active Substance: AMLODIPINE BESYLATE
  11. ELIQUIS [Concomitant]
     Active Substance: APIXABAN
  12. HERBALS\TURMERIC [Concomitant]
     Active Substance: HERBALS\TURMERIC
  13. CRANBERRY [Concomitant]
     Active Substance: CRANBERRY
  14. LIDOCAINE [Concomitant]
     Active Substance: LIDOCAINE
  15. HEPARIN [Concomitant]
     Active Substance: HEPARIN SODIUM
  16. TRAMADOL HCL [Concomitant]
     Active Substance: TRAMADOL HYDROCHLORIDE
  17. VITAMIN D3 [Concomitant]
     Active Substance: CHOLECALCIFEROL
  18. DIPHENHYDRAMINE [Concomitant]
     Active Substance: DIPHENHYDRAMINE
  19. BUTALBITAL, ACETAMINOPHEN, AND CAFFEINE [Concomitant]
     Active Substance: ACETAMINOPHEN\BUTALBITAL\CAFFEINE
  20. MAGNESIUM [Concomitant]
     Active Substance: MAGNESIUM
  21. SODIUM CHLORIDE [Concomitant]
     Active Substance: SODIUM CHLORIDE
  22. VITAMIN B COMPLEX [Concomitant]
     Active Substance: CYANOCOBALAMIN\DEXPANTHENOL\NIACINAMIDE\PYRIDOXINE HYDROCHLORIDE\RIBOFLAVIN 5^-PHOSPHATE SODIUM\THIA
  23. ZYRTEC [Concomitant]
     Active Substance: CETIRIZINE HYDROCHLORIDE
  24. CYCLOBENZAPRINE HYDROCHLORIDE [Concomitant]
     Active Substance: CYCLOBENZAPRINE HYDROCHLORIDE
  25. BIOTIN [Concomitant]
     Active Substance: BIOTIN
  26. DIPHENHYDRAMINE HYDROCHLORIDE [Concomitant]
     Active Substance: DIPHENHYDRAMINE HYDROCHLORIDE
  27. ONDANSETRON [Concomitant]
     Active Substance: ONDANSETRON
  28. KETOROLAC TROMETHAMINE [Concomitant]
     Active Substance: KETOROLAC TROMETHAMINE
  29. ZOFRAN [Concomitant]
     Active Substance: ONDANSETRON HYDROCHLORIDE

REACTIONS (31)
  - Neuropathy peripheral [Unknown]
  - Dry mouth [Unknown]
  - Dry throat [Unknown]
  - Blood pressure abnormal [Recovered/Resolved]
  - Poor venous access [Unknown]
  - Body temperature fluctuation [Unknown]
  - Haemoglobin decreased [Unknown]
  - Product use in unapproved indication [Unknown]
  - Areflexia [Unknown]
  - Musculoskeletal stiffness [Unknown]
  - Constipation [Unknown]
  - Vessel puncture site pain [Unknown]
  - Febrile infection [Unknown]
  - Dehydration [Unknown]
  - Carpal tunnel syndrome [Unknown]
  - Heart rate increased [Unknown]
  - Hypoaesthesia [Unknown]
  - Pain [Unknown]
  - Dyspepsia [Unknown]
  - Dysgeusia [Recovered/Resolved]
  - Chest pain [Unknown]
  - Muscle spasms [Unknown]
  - Back pain [Unknown]
  - Arthralgia [Unknown]
  - Pyrexia [Unknown]
  - Chills [Not Recovered/Not Resolved]
  - Myalgia [Recovered/Resolved]
  - Pruritus [Recovered/Resolved]
  - Headache [Recovered/Resolved]
  - Nausea [Recovered/Resolved]
  - Dizziness [Unknown]

NARRATIVE: CASE EVENT DATE: 20240531
